FAERS Safety Report 5707674-3 (Version None)
Quarter: 2008Q2

REPORT INFORMATION
  Report Type: 
  Country: None (occurrence: None)
  Receive Date: 20080415
  Receipt Date: 20080407
  Transmission Date: 20081010
  Serious: Yes (Other)
  Sender: FDA-Public Use
  Company Number: 2008008589

PATIENT
  Age: 3 Year
  Sex: Male

DRUGS (1)
  1. PEDIACARE INFANT DROPPER DECONGESTANT AND COUGH (PE) (DEXTROMETHORPHAN [Suspect]
     Dosage: 8 OZ, ORAL
     Route: 048

REACTIONS (1)
  - INCORRECT DOSE ADMINISTERED [None]
